FAERS Safety Report 5453953-7 (Version None)
Quarter: 2007Q3

REPORT INFORMATION
  Report Type: 
  Country: None (occurrence: None)
  Receive Date: 20070917
  Receipt Date: 20070228
  Transmission Date: 20080115
  Serious: Yes (Other)
  Sender: FDA-Public Use
  Company Number: US-ASTRAZENECA-2006UW03251

PATIENT
  Age: 51 Year
  Sex: Female
  Weight: 77.3 kg

DRUGS (2)
  1. SEROQUEL [Suspect]
     Indication: INSOMNIA
     Dosage: 100 MG, 200 MG
     Route: 048
     Dates: start: 20031208
  2. EFFEXOR XR [Concomitant]
     Dates: start: 20031120, end: 20051220

REACTIONS (4)
  - DIABETES MELLITUS [None]
  - OBESITY [None]
  - TARDIVE DYSKINESIA [None]
  - WEIGHT INCREASED [None]
